FAERS Safety Report 8022296-X (Version None)
Quarter: 2012Q1

REPORT INFORMATION
  Report Type: 
  Country: None (occurrence: None)
  Receive Date: 20120104
  Receipt Date: 20111228
  Transmission Date: 20120608
  Serious: Yes (Other)
  Sender: FDA-Public Use
  Company Number: PHHY2011CN112994

PATIENT
  Sex: Male

DRUGS (1)
  1. TRILEPTAL [Suspect]
     Dosage: MATERNAL DOSE: 300 MG, BID
     Route: 064

REACTIONS (2)
  - COUGH [None]
  - CONGENITAL DIAPHRAGMATIC EVENTRATION [None]
